FAERS Safety Report 19458568 (Version 1)
Quarter: 2021Q2

REPORT INFORMATION
  Report Type: Spontaneous
  Country: IT (occurrence: IT)
  Receive Date: 20210624
  Receipt Date: 20210624
  Transmission Date: 20210717
  Serious: Yes (Other)
  Sender: FDA-Public Use
  Company Number: IT-MYLANLABS-2021M1036615

PATIENT
  Age: 80 Year
  Sex: Female

DRUGS (1)
  1. PACLITAXEL. [Suspect]
     Active Substance: PACLITAXEL
     Indication: NEOPLASM MALIGNANT
     Dosage: 100 MILLIGRAM, CYCLE
     Route: 042
     Dates: start: 20210319, end: 20210319

REACTIONS (2)
  - Anxiety [Recovered/Resolved]
  - Dyspnoea at rest [Recovered/Resolved]

NARRATIVE: CASE EVENT DATE: 20210319
